FAERS Safety Report 25139724 (Version 1)
Quarter: 2025Q1

REPORT INFORMATION
  Report Type: Spontaneous
  Country: US (occurrence: US)
  Receive Date: 20250331
  Receipt Date: 20250331
  Transmission Date: 20250409
  Serious: Yes (Other)
  Sender: CSL BEHRING
  Company Number: US-BEH-2025200422

PATIENT
  Age: 52 Year
  Sex: Male
  Weight: 89.796 kg

DRUGS (2)
  1. HAEGARDA [Suspect]
     Active Substance: HUMAN C1-ESTERASE INHIBITOR
     Indication: Hereditary angioedema
     Dosage: 5500 IU, BIW
     Route: 058
     Dates: start: 202502
  2. HAEGARDA [Suspect]
     Active Substance: HUMAN C1-ESTERASE INHIBITOR
     Indication: Prophylaxis

REACTIONS (2)
  - Hereditary angioedema [Unknown]
  - Weight decreased [Unknown]

NARRATIVE: CASE EVENT DATE: 20250319
